FAERS Safety Report 25524580 (Version 1)
Quarter: 2025Q3

REPORT INFORMATION
  Report Type: Spontaneous
  Country: GB (occurrence: GB)
  Receive Date: 20250707
  Receipt Date: 20250707
  Transmission Date: 20251020
  Serious: Yes (Other)
  Sender: MYLAN
  Company Number: GB-MHRA-TPP61847465C7619307YC1751274297384

PATIENT
  Age: 37 Year
  Sex: Female
  Weight: 65 kg

DRUGS (12)
  1. DOXAZOSIN [Suspect]
     Active Substance: DOXAZOSIN MESYLATE
     Indication: Ill-defined disorder
  2. DOXAZOSIN [Suspect]
     Active Substance: DOXAZOSIN MESYLATE
     Route: 065
  3. DOXAZOSIN [Suspect]
     Active Substance: DOXAZOSIN MESYLATE
     Route: 065
  4. DOXAZOSIN [Suspect]
     Active Substance: DOXAZOSIN MESYLATE
  5. AMLODIPINE [Concomitant]
     Active Substance: AMLODIPINE BESYLATE
     Indication: Ill-defined disorder
     Dosage: 1 DOSAGE FORM, AM (TAKE ONE TABLET EVERY MORNING)
     Dates: start: 20250429, end: 20250527
  6. AMLODIPINE [Concomitant]
     Active Substance: AMLODIPINE BESYLATE
     Dosage: 1 DOSAGE FORM, AM (TAKE ONE TABLET EVERY MORNING)
     Route: 065
     Dates: start: 20250429, end: 20250527
  7. AMLODIPINE [Concomitant]
     Active Substance: AMLODIPINE BESYLATE
     Dosage: 1 DOSAGE FORM, AM (TAKE ONE TABLET EVERY MORNING)
     Route: 065
     Dates: start: 20250429, end: 20250527
  8. AMLODIPINE [Concomitant]
     Active Substance: AMLODIPINE BESYLATE
     Dosage: 1 DOSAGE FORM, AM (TAKE ONE TABLET EVERY MORNING)
     Dates: start: 20250429, end: 20250527
  9. DOXAZOSIN [Concomitant]
     Active Substance: DOXAZOSIN MESYLATE
     Indication: Ill-defined disorder
     Dosage: 1 DOSAGE FORM, QD (TAKE ONE DAILY FOR ONE WEEK)
     Dates: start: 20250624
  10. DOXAZOSIN [Concomitant]
     Active Substance: DOXAZOSIN MESYLATE
     Dosage: 1 DOSAGE FORM, QD (TAKE ONE DAILY FOR ONE WEEK)
     Route: 065
     Dates: start: 20250624
  11. DOXAZOSIN [Concomitant]
     Active Substance: DOXAZOSIN MESYLATE
     Dosage: 1 DOSAGE FORM, QD (TAKE ONE DAILY FOR ONE WEEK)
     Route: 065
     Dates: start: 20250624
  12. DOXAZOSIN [Concomitant]
     Active Substance: DOXAZOSIN MESYLATE
     Dosage: 1 DOSAGE FORM, QD (TAKE ONE DAILY FOR ONE WEEK)
     Dates: start: 20250624

REACTIONS (1)
  - Eye swelling [Not Recovered/Not Resolved]

NARRATIVE: CASE EVENT DATE: 20250630
